FAERS Safety Report 4288827-0 (Version None)
Quarter: 2004Q1

REPORT INFORMATION
  Report Type: 
  Country: None (occurrence: None)
  Receive Date: 20040209
  Receipt Date: 20040129
  Transmission Date: 20041129
  Serious: Yes (Other)
  Sender: FDA-Public Use
  Company Number: PHEH2004US01370

PATIENT
  Age: 63 Year
  Sex: Male

DRUGS (2)
  1. NEORAL [Suspect]
     Indication: RENAL TRANSPLANT
     Route: 048
  2. PREDNISONE [Concomitant]

REACTIONS (4)
  - ASCITES [None]
  - DISEASE PROGRESSION [None]
  - HEPATIC FIBROSIS [None]
  - LIVER DISORDER [None]
